FAERS Safety Report 5454496-7 (Version None)
Quarter: 2007Q3

REPORT INFORMATION
  Report Type: 
  Country: None (occurrence: None)
  Receive Date: 20070917
  Receipt Date: 20070228
  Transmission Date: 20080115
  Serious: No
  Sender: FDA-Public Use
  Company Number: US-ASTRAZENECA-2006UW12016

PATIENT
  Sex: Female
  Weight: 105.5 kg

DRUGS (9)
  1. SEROQUEL [Suspect]
     Indication: PSYCHOTIC DISORDER
     Route: 048
     Dates: start: 20010101, end: 20050101
  2. ZYPREXA [Suspect]
  3. ABILIFY [Concomitant]
     Dosage: 5 - 15 MG
     Dates: start: 20040101
  4. CLOZARIL [Concomitant]
  5. HALDOL [Concomitant]
  6. RISPERDAL [Concomitant]
     Dates: start: 19990101
  7. THORAZINE [Concomitant]
  8. TRILAFON [Concomitant]
  9. UNSPECIFIED PSYCHIATRIC MEDICATION [Concomitant]

REACTIONS (2)
  - ADVERSE EVENT [None]
  - DIABETES MELLITUS [None]
